FAERS Safety Report 8997941 (Version 2)
Quarter: 2013Q1

REPORT INFORMATION
  Report Type: Spontaneous
  Country: CN (occurrence: CN)
  Receive Date: 20130104
  Receipt Date: 20130110
  Transmission Date: 20140127
  Serious: Yes (Other)
  Sender: FDA-Public Use
  Company Number: CN-BRISTOL-MYERS SQUIBB COMPANY-17243452

PATIENT
  Age: 5 Decade
  Sex: Male

DRUGS (2)
  1. GLUCOPHAGE [Suspect]
     Indication: TYPE 2 DIABETES MELLITUS
     Route: 048
  2. INSULIN [Concomitant]
     Indication: TYPE 2 DIABETES MELLITUS

REACTIONS (3)
  - Melaena [Unknown]
  - Asthenia [Unknown]
  - Anaemia [Unknown]
